FAERS Safety Report 19462639 (Version 3)
Quarter: 2021Q3

REPORT INFORMATION
  Report Type: Report from Study
  Country: DE (occurrence: DE)
  Receive Date: 20210625
  Receipt Date: 20210701
  Transmission Date: 20211014
  Serious: Yes (Death, Hospitalization)
  Sender: FDA-Public Use
  Company Number: DE-DSJP-DSU-2021-115739

PATIENT
  Age: 80 Year
  Sex: Male
  Weight: 81 kg

DRUGS (22)
  1. NIVOLUMAB (DS?8201A STUDY) [Suspect]
     Active Substance: NIVOLUMAB
     Dosage: 360 MG, ONCE EVERY 3 WK
     Route: 042
     Dates: start: 20210202, end: 20210202
  2. TRASTUZUMAB DERUXTECAN. [Suspect]
     Active Substance: TRASTUZUMAB DERUXTECAN
     Dosage: 5.4 MG/KG, ONCE EVERY 3 WK
     Route: 042
     Dates: start: 20210202, end: 20210202
  3. TRASTUZUMAB DERUXTECAN. [Suspect]
     Active Substance: TRASTUZUMAB DERUXTECAN
     Dosage: 5.4 MG/KG, ONCE EVERY 3 WK
     Route: 042
     Dates: start: 20210503, end: 20210503
  4. PANTOPRAZOL                        /01263201/ [Concomitant]
     Active Substance: PANTOPRAZOLE
     Indication: HIATUS HERNIA
     Dosage: 40 MG, QD
     Route: 048
     Dates: start: 20210222
  5. TRASTUZUMAB DERUXTECAN. [Suspect]
     Active Substance: TRASTUZUMAB DERUXTECAN
     Dosage: 5.4 MG/KG, ONCE EVERY 3 WK
     Route: 042
     Dates: start: 20210412, end: 20210412
  6. TRASTUZUMAB DERUXTECAN. [Suspect]
     Active Substance: TRASTUZUMAB DERUXTECAN
     Dosage: 5.4 MG/KG, ONCE EVERY 3 WK
     Route: 042
     Dates: start: 20210222, end: 20210222
  7. VITAMIN D                          /00107901/ [Concomitant]
     Active Substance: ERGOCALCIFEROL
     Indication: PROPHYLAXIS
     Dosage: 20 IU, ONCE EVERY 1 WK
     Route: 048
     Dates: start: 20210503
  8. NIVOLUMAB (DS?8201A STUDY) [Suspect]
     Active Substance: NIVOLUMAB
     Dosage: 360 MG, ONCE EVERY 3 WK
     Route: 042
     Dates: start: 20210222, end: 20210222
  9. ERYTHROCYTES [Concomitant]
     Active Substance: HUMAN RED BLOOD CELL
     Indication: ANAEMIA
     Dosage: 0.3 L, QD
     Route: 042
     Dates: start: 20210517, end: 20210517
  10. NIVOLUMAB (DS?8201A STUDY) [Suspect]
     Active Substance: NIVOLUMAB
     Dosage: 360 MG, ONCE EVERY 3 WK
     Route: 042
     Dates: start: 20210503, end: 20210503
  11. RAMIPRIL. [Concomitant]
     Active Substance: RAMIPRIL
     Indication: HYPERTENSION
     Dosage: 2.5 MG, QD
     Route: 048
     Dates: start: 200904, end: 20210526
  12. NIVOLUMAB (DS?8201A STUDY) [Suspect]
     Active Substance: NIVOLUMAB
     Dosage: 360 MG, ONCE EVERY 3 WK
     Route: 042
     Dates: start: 20210315, end: 20210315
  13. NIVOLUMAB (DS?8201A STUDY) [Suspect]
     Active Substance: NIVOLUMAB
     Dosage: 360 MG, ONCE EVERY 3 WK
     Route: 042
     Dates: start: 20210412, end: 20210412
  14. ACETYLSALICYLIC ACID [Concomitant]
     Active Substance: ASPIRIN
     Indication: MYOCARDIAL ISCHAEMIA
     Dosage: 100 MG, QD
     Route: 048
     Dates: start: 200904
  15. METOPROLOL. [Concomitant]
     Active Substance: METOPROLOL
     Indication: HYPERTENSION
     Dosage: 11.875 MG, QD
     Route: 048
     Dates: start: 200904
  16. ONDANSETRON [Concomitant]
     Active Substance: ONDANSETRON
     Indication: PROPHYLAXIS OF NAUSEA AND VOMITING
     Dosage: 8 MG, ALWAYS BEFORE IMP ADMINISTRATION
     Route: 042
     Dates: start: 20210112
  17. TRASTUZUMAB DERUXTECAN. [Suspect]
     Active Substance: TRASTUZUMAB DERUXTECAN
     Indication: TRANSITIONAL CELL CARCINOMA
     Dosage: 5.4 MG/KG, ONCE EVERY 3 WK
     Route: 042
     Dates: start: 20210112, end: 20210112
  18. TRASTUZUMAB DERUXTECAN. [Suspect]
     Active Substance: TRASTUZUMAB DERUXTECAN
     Dosage: 5.4 MG/KG, ONCE EVERY 3 WK
     Route: 042
     Dates: start: 20210315, end: 20210315
  19. NIVOLUMAB (DS?8201A STUDY) [Suspect]
     Active Substance: NIVOLUMAB
     Indication: TRANSITIONAL CELL CARCINOMA
     Dosage: 360 MG, ONCE EVERY 3 WK
     Route: 042
     Dates: start: 20210112, end: 20210112
  20. FLUVASTATIN [Concomitant]
     Active Substance: FLUVASTATIN SODIUM
     Indication: HYPERLIPIDAEMIA
     Dosage: 80 MG, QD
     Route: 048
     Dates: start: 200904
  21. NOVAMINSULFON [Concomitant]
     Active Substance: METAMIZOLE
     Indication: CANCER PAIN
     Dosage: 500 MG, PRN
     Route: 048
     Dates: start: 20210104
  22. ONDANSETRON [Concomitant]
     Active Substance: ONDANSETRON
     Indication: NAUSEA
     Dosage: 8 MG, PRN
     Route: 042
     Dates: start: 20210114

REACTIONS (2)
  - Pneumonitis [Not Recovered/Not Resolved]
  - Respiratory failure [Fatal]

NARRATIVE: CASE EVENT DATE: 20210525
